FAERS Safety Report 7987667-6 (Version None)
Quarter: 2011Q4

REPORT INFORMATION
  Report Type: 
  Country: None (occurrence: None)
  Receive Date: 20111216
  Receipt Date: 20111213
  Transmission Date: 20120403
  Serious: Yes (Hospitalization, Disabling, Other)
  Sender: FDA-Public Use
  Company Number: BR-ABBOTT-11P-020-0708526-00

PATIENT
  Sex: Female
  Weight: 66 kg

DRUGS (5)
  1. HUMIRA [Suspect]
     Route: 058
  2. KETOPROFEN 50MG/ PARACETAMOL 400MG/ FAMOTIDINE 40MG/ TRIAMCINOLONE 2MG [Concomitant]
     Indication: OSTEOARTHRITIS
     Route: 048
  3. HUMIRA [Suspect]
     Indication: RHEUMATOID ARTHRITIS
     Route: 058
     Dates: start: 20080101, end: 20101201
  4. METHOTREXATE [Concomitant]
     Indication: BLOOD PRESSURE
     Route: 048
  5. CAPOTEN [Concomitant]
     Indication: BLOOD PRESSURE
     Route: 048

REACTIONS (12)
  - PYREXIA [None]
  - BONE NEOPLASM [None]
  - OSTEOMYELITIS [None]
  - DECREASED APPETITE [None]
  - PAIN [None]
  - CHEST PAIN [None]
  - MOBILITY DECREASED [None]
  - URINARY TRACT INFECTION [None]
  - INGUINAL HERNIA [None]
  - SYNCOPE [None]
  - WEIGHT DECREASED [None]
  - ABDOMINAL HERNIA [None]
